FAERS Safety Report 12631387 (Version 2)
Quarter: 2016Q3

REPORT INFORMATION
  Report Type: Spontaneous
  Country: US (occurrence: US)
  Receive Date: 20160808
  Receipt Date: 20160808
  Transmission Date: 20161109
  Serious: No
  Sender: FDA-Public Use
  Company Number: US-BEH-2015053678

PATIENT
  Age: 64 Year
  Sex: Female

DRUGS (1)
  1. HIZENTRA [Suspect]
     Active Substance: HUMAN IMMUNOGLOBULIN G
     Indication: PRODUCT USED FOR UNKNOWN INDICATION
     Dosage: ??-???-2011 TO 11-SEP-2015
     Dates: end: 20150911

REACTIONS (2)
  - Wheezing [Unknown]
  - Injection site reaction [Unknown]

NARRATIVE: CASE EVENT DATE: 201505
